FAERS Safety Report 19711859 (Version 1)
Quarter: 2021Q3

REPORT INFORMATION
  Report Type: Spontaneous
  Country: CN (occurrence: CN)
  Receive Date: 20210816
  Receipt Date: 20210816
  Transmission Date: 20211014
  Serious: Yes (Other)
  Sender: FDA-Public Use
  Company Number: CN-BAYER-2021-192176

PATIENT
  Age: 52 Year
  Sex: Male

DRUGS (3)
  1. STIVARGA [Suspect]
     Active Substance: REGORAFENIB
     Indication: HEPATIC CANCER
     Dosage: 160 MG, TID
     Route: 048
     Dates: start: 20180119, end: 20200116
  2. CAR T?CELLS NOS [Concomitant]
  3. NEXAVAR [Suspect]
     Active Substance: SORAFENIB
     Indication: HEPATIC CANCER
     Dosage: 400 MG, BID
     Route: 048
     Dates: start: 20171219, end: 20180118

REACTIONS (5)
  - Palmar-plantar erythrodysaesthesia syndrome [None]
  - Hepatic cancer [Recovering/Resolving]
  - Overdose [None]
  - Pain of skin [Recovering/Resolving]
  - Skin fissures [Recovering/Resolving]

NARRATIVE: CASE EVENT DATE: 20180119
